FAERS Safety Report 22209381 (Version 3)
Quarter: 2023Q2

REPORT INFORMATION
  Report Type: Spontaneous
  Country: US (occurrence: US)
  Receive Date: 20230413
  Receipt Date: 20230504
  Transmission Date: 20230722
  Serious: No
  Sender: FDA-Public Use
  Company Number: US-SANOFI-01568704

PATIENT
  Sex: Male

DRUGS (1)
  1. ELITEK [Suspect]
     Active Substance: RASBURICASE
     Indication: Blood uric acid
     Dosage: UNK
     Route: 065

REACTIONS (2)
  - Product package associated injury [Unknown]
  - Accidental exposure to product [Unknown]
